FAERS Safety Report 10523831 (Version 1)
Quarter: 2014Q4

REPORT INFORMATION
  Report Type: Spontaneous
  Country: US (occurrence: None)
  Receive Date: 20141015
  Receipt Date: 20141015
  Transmission Date: 20150528
  Serious: No
  Sender: FDA-Public Use
  Company Number: None

PATIENT

DRUGS (2)
  1. ACETYLCYSTEINE ACETYLCYSTEINE [Suspect]
     Active Substance: ACETYLCYSTEINE
     Route: 055
  2. ACETYLCYSTEINE ACETYLCYSTEINE [Suspect]
     Active Substance: ACETYLCYSTEINE

REACTIONS (2)
  - Incorrect route of drug administration [None]
  - Product packaging confusion [None]
